FAERS Safety Report 16971420 (Version 1)
Quarter: 2019Q4

REPORT INFORMATION
  Report Type: Spontaneous
  Country: US (occurrence: US)
  Receive Date: 20191028
  Receipt Date: 20191028
  Transmission Date: 20200122
  Serious: Yes (Disabling)
  Sender: FDA-Public Use
  Company Number: None

PATIENT
  Age: 77 Year
  Sex: Female
  Weight: 46.8 kg

DRUGS (1)
  1. AMIODARONE [Suspect]
     Active Substance: AMIODARONE
     Indication: ATRIAL FIBRILLATION
     Dates: start: 20161101, end: 20190815

REACTIONS (6)
  - Neuropathy peripheral [None]
  - Toxicity to various agents [None]
  - Hyperparathyroidism [None]
  - Wheezing [None]
  - Visual impairment [None]
  - Alopecia [None]

NARRATIVE: CASE EVENT DATE: 20190701
